FAERS Safety Report 12923800 (Version 1)
Quarter: 2016Q4

REPORT INFORMATION
  Report Type: Spontaneous
  Country: IT (occurrence: IT)
  Receive Date: 20161109
  Receipt Date: 20161109
  Transmission Date: 20170207
  Serious: Yes (Other)
  Sender: FDA-Public Use
  Company Number: IT-CONCORDIA PHARMACEUTICALS INC.-GSH201611-005660

PATIENT
  Age: 60 Year
  Sex: Female

DRUGS (4)
  1. DIBASE [Concomitant]
     Active Substance: CHOLECALCIFEROL
  2. LANSOX [Concomitant]
     Active Substance: LANSOPRAZOLE
  3. MEDROL [Concomitant]
     Active Substance: METHYLPREDNISOLONE
  4. HYDROXYCHLOROQUINE [Suspect]
     Active Substance: HYDROXYCHLOROQUINE
     Indication: RHEUMATOID ARTHRITIS
     Route: 048
     Dates: start: 20150416

REACTIONS (2)
  - Pneumonitis [Not Recovered/Not Resolved]
  - Small cell lung cancer [Not Recovered/Not Resolved]

NARRATIVE: CASE EVENT DATE: 20161018
